FAERS Safety Report 5528001-0 (Version None)
Quarter: 2007Q4

REPORT INFORMATION
  Report Type: 
  Country: None (occurrence: None)
  Receive Date: 20071123
  Receipt Date: 20050826
  Transmission Date: 20080405
  Serious: Yes (Life-Threatening, Hospitalization)
  Sender: FDA-Public Use
  Company Number: 20074285

PATIENT
  Sex: Female

DRUGS (1)
  1. LIORESAL [Suspect]
     Indication: MUSCLE SPASTICITY
     Dosage: MCG, DAILY, INTRATHECAL
     Route: 037

REACTIONS (16)
  - ANXIETY [None]
  - DEVICE BREAKAGE [None]
  - DEVICE FAILURE [None]
  - DISCOMFORT [None]
  - DRUG WITHDRAWAL SYNDROME [None]
  - FEELING OF BODY TEMPERATURE CHANGE [None]
  - IMMUNE SYSTEM DISORDER [None]
  - INFECTION [None]
  - NAUSEA [None]
  - NO THERAPEUTIC RESPONSE [None]
  - PAIN [None]
  - PYREXIA [None]
  - REBOUND EFFECT [None]
  - STRESS [None]
  - TREMOR [None]
  - WHITE BLOOD CELL COUNT INCREASED [None]
